FAERS Safety Report 7408190-3 (Version None)
Quarter: 2011Q2

REPORT INFORMATION
  Report Type: 
  Country: None (occurrence: None)
  Receive Date: 20110412
  Receipt Date: 20100806
  Transmission Date: 20111010
  Serious: Yes (Hospitalization)
  Sender: FDA-Public Use
  Company Number: US-BAYER-200935617NA

PATIENT
  Age: 24 Year
  Sex: Female
  Weight: 68.027 kg

DRUGS (20)
  1. GLYCOPYRROLATE [Concomitant]
     Dosage: 2 MG, UNK
     Dates: start: 20070101
  2. CYCLOBENZAPRINE [Concomitant]
     Dosage: 10 MG, UNK
     Dates: start: 20090101
  3. HYDROXYZINE HCL [Concomitant]
     Dosage: 25 MG, UNK
     Dates: start: 20090101
  4. LOESTRIN FE 1/20 [Concomitant]
     Indication: DYSMENORRHOEA
     Dosage: UNK
     Dates: start: 20090101
  5. YASMIN [Suspect]
     Indication: DYSMENORRHOEA
     Route: 048
     Dates: start: 20040601, end: 20061101
  6. ETODOLAC [Concomitant]
     Dosage: 400 MG, UNK
     Dates: start: 20080101
  7. ACETAMINOPHEN [Concomitant]
     Dosage: UNK UNK, PRN
  8. DICYCLOMINE [Concomitant]
     Dosage: 20 MG, UNK
     Dates: start: 20080101
  9. LORTAB [Concomitant]
  10. AMOXICILLIN [Concomitant]
     Dosage: 500 MG, UNK
     Dates: start: 20080101
  11. RESPIRATORY SYSTEM [Concomitant]
     Dosage: UNK
     Dates: start: 20080101
  12. HYOSCYAMINE [Concomitant]
     Dosage: 0.375 ER
     Dates: start: 20060101
  13. DOXYCYCLINE [Concomitant]
     Dosage: 100 MG, UNK
     Dates: start: 20070101
  14. HYDROCODONE BITARTRATE AND ACETAMINOPHEN [Concomitant]
     Dosage: 5/500MG
     Dates: start: 20080101
  15. METOCLOPRAM [Concomitant]
     Dosage: 10 MG, UNK
     Dates: start: 20080101
  16. RANITIDINE HCL [Concomitant]
     Dosage: 150 MG, UNK
     Dates: start: 20080101
  17. ALEVE [Concomitant]
     Dosage: UNK UNK, PRN
  18. YAZ [Suspect]
     Indication: DYSMENORRHOEA
     Route: 048
     Dates: start: 20061101, end: 20091101
  19. CLARITHROMYCIN [Concomitant]
     Dosage: 500 MG, UNK
     Dates: start: 20080101
  20. WELCHOL [Concomitant]
     Dosage: 625 MG, UNK
     Dates: start: 20090101

REACTIONS (4)
  - CHOLECYSTITIS CHRONIC [None]
  - GALLBLADDER INJURY [None]
  - CHOLELITHIASIS [None]
  - BILIARY DYSKINESIA [None]
